FAERS Safety Report 10956478 (Version 1)
Quarter: 2015Q1

REPORT INFORMATION
  Report Type: Spontaneous
  Country: NL (occurrence: NL)
  Receive Date: 20150326
  Receipt Date: 20150326
  Transmission Date: 20150721
  Serious: Yes (Other)
  Sender: FDA-Public Use
  Company Number: NL-TEVA-549347ISR

PATIENT
  Age: 48 Year
  Sex: Male

DRUGS (1)
  1. OLANZAPINE TEVA 2,5 MG FILMOMHULDE TABLETTEN [Suspect]
     Active Substance: OLANZAPINE
     Route: 048
     Dates: start: 2014

REACTIONS (3)
  - Deafness transitory [Recovering/Resolving]
  - Dizziness [Recovering/Resolving]
  - Palpitations [Recovering/Resolving]

NARRATIVE: CASE EVENT DATE: 20150318
